FAERS Safety Report 8626583 (Version 2)
Quarter: 2012Q4

REPORT INFORMATION
  Report Type: 
  Country: US (occurrence: US)
  Receive Date: 20120620
  Receipt Date: 20121129
  Transmission Date: 20130627
  Serious: Yes (Hospitalization)
  Sender: FDA-Public Use
  Company Number: US-ASTRAZENECA-2012SE38576

PATIENT
  Age: 62 Year
  Sex: Female

DRUGS (5)
  1. NEXIUM [Suspect]
     Dosage: AS NEEDED
     Route: 048
  2. PRILOSEC [Suspect]
     Dosage: AS NEEDED
     Route: 048
  3. LYRICA [Concomitant]
  4. KLONOPIN [Concomitant]
  5. BENTYLOL [Concomitant]
     Dosage: AS NEEDED

REACTIONS (6)
  - Diverticulitis [Unknown]
  - Hyperchlorhydria [Unknown]
  - Abdominal distension [Unknown]
  - Malaise [Unknown]
  - Off label use [Unknown]
  - Drug ineffective [Unknown]
